FAERS Safety Report 21207356 (Version 1)
Quarter: 2022Q3

REPORT INFORMATION
  Report Type: Spontaneous
  Country: CN (occurrence: CN)
  Receive Date: 20220812
  Receipt Date: 20220812
  Transmission Date: 20221026
  Serious: Yes (Other)
  Sender: FDA-Public Use
  Company Number: CN-009507513-2208CHN003296

PATIENT
  Age: 77 Year
  Sex: Male
  Weight: 65 kg

DRUGS (2)
  1. CILASTATIN SODIUM\IMIPENEM [Suspect]
     Active Substance: CILASTATIN SODIUM\IMIPENEM
     Indication: Urinary tract infection
     Dosage: 500 MG, Q6H (ALSO REPORTED AS THREE TIMES A DAY)
     Route: 041
     Dates: start: 20220721, end: 20220723
  2. SODIUM CHLORIDE [Concomitant]
     Active Substance: SODIUM CHLORIDE
     Indication: Urinary tract infection
     Dosage: 100 ML, Q6H (ALSO REPORTED AS THREE TIMES A DAY)
     Route: 041
     Dates: start: 20220721, end: 20220723

REACTIONS (1)
  - Delirium [Recovered/Resolved]

NARRATIVE: CASE EVENT DATE: 20220722
